FAERS Safety Report 11723931 (Version 1)
Quarter: 2015Q4

REPORT INFORMATION
  Report Type: Spontaneous
  Country: JP (occurrence: JP)
  Receive Date: 20151111
  Receipt Date: 20151111
  Transmission Date: 20160304
  Serious: Yes (Life-Threatening, Other)
  Sender: FDA-Public Use
  Company Number: JP-ROXANE LABORATORIES, INC.-2015-RO-01875RO

PATIENT
  Age: 67 Year
  Sex: Female

DRUGS (2)
  1. PREDNISOLONE. [Suspect]
     Active Substance: PREDNISOLONE
     Indication: GRANULOMATOSIS WITH POLYANGIITIS
     Route: 065
  2. CYCLOPHOSPHAMIDE. [Suspect]
     Active Substance: CYCLOPHOSPHAMIDE
     Indication: GRANULOMATOSIS WITH POLYANGIITIS
     Route: 065

REACTIONS (7)
  - Enterocolitis haemorrhagic [Unknown]
  - Pulmonary haemorrhage [Recovered/Resolved]
  - Cytomegalovirus hepatitis [Unknown]
  - Lymphopenia [Recovered/Resolved]
  - Pneumonia viral [Unknown]
  - Cytomegalovirus viraemia [Recovered/Resolved]
  - Hypogammaglobulinaemia [Unknown]
